FAERS Safety Report 20680280 (Version 1)
Quarter: 2022Q2

REPORT INFORMATION
  Report Type: Spontaneous
  Country: US (occurrence: US)
  Receive Date: 20220406
  Receipt Date: 20220406
  Transmission Date: 20220721
  Serious: No
  Sender: FDA-Public Use
  Company Number: US-ELI_LILLY_AND_COMPANY-US202204001957

PATIENT
  Sex: Female

DRUGS (4)
  1. TALTZ [Interacting]
     Active Substance: IXEKIZUMAB
     Indication: Psoriasis
     Dosage: UNK UNK, UNKNOWN
     Route: 065
     Dates: start: 202108
  2. TALTZ [Interacting]
     Active Substance: IXEKIZUMAB
     Indication: Psoriasis
     Dosage: UNK UNK, UNKNOWN
     Route: 065
     Dates: start: 202108
  3. TALTZ [Interacting]
     Active Substance: IXEKIZUMAB
     Indication: Psoriatic arthropathy
     Dosage: UNK UNK, UNKNOWN
     Route: 065
  4. TALTZ [Interacting]
     Active Substance: IXEKIZUMAB
     Indication: Psoriatic arthropathy
     Dosage: UNK UNK, UNKNOWN
     Route: 065

REACTIONS (6)
  - Drug interaction [Unknown]
  - Oropharyngeal pain [Recovering/Resolving]
  - Injection site pain [Unknown]
  - Injection site erythema [Not Recovered/Not Resolved]
  - Injection site bruising [Recovered/Resolved]
  - Inappropriate schedule of product administration [Unknown]
